FAERS Safety Report 14308566 (Version 6)
Quarter: 2022Q4

REPORT INFORMATION
  Report Type: Spontaneous
  Country: SK (occurrence: SK)
  Receive Date: 20171220
  Receipt Date: 20221024
  Transmission Date: 20230112
  Serious: Yes (Other)
  Sender: FDA-Public Use
  Company Number: SK-GLAXOSMITHKLINE-SK2017GSK162852

PATIENT
  Sex: Female
  Weight: 53 kg

DRUGS (4)
  1. SILDENAFIL [Interacting]
     Active Substance: SILDENAFIL
     Indication: Pulmonary arterial hypertension
     Dosage: 20 MILLIGRAM, QD (20 MG,3X/DAY)
     Route: 065
     Dates: start: 200803
  2. AMBRISENTAN [Interacting]
     Active Substance: AMBRISENTAN
     Indication: Pulmonary arterial hypertension
     Dosage: 5 MILLIGRAM, QD (5 MG, 1X/DAY)
     Route: 048
     Dates: start: 200901
  3. WARFARIN SODIUM [Interacting]
     Active Substance: WARFARIN SODIUM
     Indication: Pulmonary arterial hypertension
     Dosage: UNK
     Route: 065
     Dates: start: 200803
  4. AMBRISENTAN [Interacting]
     Active Substance: AMBRISENTAN
     Indication: Pulmonary arterial hypertension
     Dosage: 5 MILLIGRAM, QD
     Route: 048
     Dates: start: 200901

REACTIONS (6)
  - Right ventricular failure [Recovering/Resolving]
  - Erythema [Recovered/Resolved]
  - Hepatic enzyme increased [Recovering/Resolving]
  - Nasal congestion [Recovering/Resolving]
  - Drug interaction [Unknown]
  - Drug ineffective [Recovering/Resolving]

NARRATIVE: CASE EVENT DATE: 20080301
